FAERS Safety Report 5197154-9 (Version None)
Quarter: 2006Q4

REPORT INFORMATION
  Report Type: 
  Country: None (occurrence: None)
  Receive Date: 20061227
  Receipt Date: 20061214
  Transmission Date: 20070319
  Serious: Yes (Other)
  Sender: FDA-Public Use
  Company Number: 2006154179

PATIENT
  Sex: Female

DRUGS (8)
  1. FRADEMICINA (LINCOMYCIN) [Suspect]
     Indication: INFLUENZA
     Dosage: 600 MG (600 MG,1 IN 1 D)
     Dates: start: 19760101
  2. NIMESULIDE (NIMESULIDE) [Suspect]
     Indication: INFLAMMATION
     Dates: start: 20020101, end: 20020101
  3. NIMESULIDE (NIMESULIDE) [Suspect]
     Indication: PAIN
     Dates: start: 20020101, end: 20020101
  4. DIABINESE [Concomitant]
  5. ALDOMET [Concomitant]
  6. INSULIN [Concomitant]
  7. BALCOR (DILTIAZEM HYDROCHLORIDE) [Concomitant]
  8. HYDROCHLOROTHIAZIDE [Concomitant]

REACTIONS (4)
  - CARDIAC DISORDER [None]
  - INFLAMMATION [None]
  - PAIN [None]
  - UPPER LIMB FRACTURE [None]
